FAERS Safety Report 20439380 (Version 1)
Quarter: 2022Q1

REPORT INFORMATION
  Report Type: Spontaneous
  Country: US (occurrence: US)
  Receive Date: 20220207
  Receipt Date: 20220207
  Transmission Date: 20220423
  Serious: No
  Sender: FDA-Public Use
  Company Number: US-BAUSCH-BL-2022-003031

PATIENT
  Sex: Female

DRUGS (2)
  1. TRETINOIN [Suspect]
     Active Substance: TRETINOIN
     Indication: Acne
     Route: 061
     Dates: start: 2021
  2. TRETINOIN [Suspect]
     Active Substance: TRETINOIN
     Route: 061
     Dates: start: 202201

REACTIONS (3)
  - Therapeutic product effect decreased [Unknown]
  - Product formulation issue [Unknown]
  - Product quality issue [Unknown]
